FAERS Safety Report 10455992 (Version 1)
Quarter: 2014Q3

REPORT INFORMATION
  Report Type: Spontaneous
  Country: US (occurrence: None)
  Receive Date: 20140912
  Receipt Date: 20140912
  Transmission Date: 20150326
  Serious: Yes (Other)
  Sender: FDA-Public Use
  Company Number: 2014EXPUS00236

PATIENT
  Age: 19 Year
  Sex: Female

DRUGS (14)
  1. BUPIVACAINE HYDROCHLORIDE AND EPINEPHRINE BITARTRATE [Suspect]
     Active Substance: BUPIVACAINE HYDROCHLORIDE\EPINEPHRINE BITARTRATE
     Indication: POSTOPERATIVE ANALGESIA
     Dosage: 20 CC AT 0.25% ONCE BY INJECTION?
     Dates: start: 20140825, end: 20140825
  2. DEMEROL (PETHIDINE HYDROCHLORIDE) [Concomitant]
  3. VALIUM [Suspect]
     Active Substance: DIAZEPAM
  4. EXPAREL [Suspect]
     Active Substance: BUPIVACAINE
     Indication: POSTOPERATIVE ANALGESIA
     Dosage: 266 MG (20ML) INJECTED ONCE, OTHER
     Dates: start: 20140825, end: 20140825
  5. CEFAZOLIN (CEFAZOLIN SODIUM) [Concomitant]
  6. PERCOCET (OXYCODONE HYDROCHLORIDE, PARACETRAMOL) [Concomitant]
  7. LIDOCAINE (LIDOCAINE HYDROCHLORIDE) [Concomitant]
  8. FENTANYL. [Concomitant]
     Active Substance: FENTANYL
  9. DEXAMETHASONE (DEXAMETHASONE SODIUM PHOSPHATE) [Concomitant]
  10. LACTATED RINGERS (CALCIUM CHLORIDE, POSTASSIUM CHLORIDE, SODIUM LACTATE) [Concomitant]
  11. PROPOFOL. [Concomitant]
     Active Substance: PROPOFOL
  12. ISOFLURANE. [Concomitant]
     Active Substance: ISOFLURANE
  13. VERSED (MIDAZOLAM HYDROCHLORIDE) [Concomitant]
  14. ONDANSETRON. [Concomitant]
     Active Substance: ONDANSETRON

REACTIONS (1)
  - Ileus paralytic [None]

NARRATIVE: CASE EVENT DATE: 20140825
